FAERS Safety Report 15717688 (Version 1)
Quarter: 2018Q4

REPORT INFORMATION
  Report Type: Spontaneous
  Country: US (occurrence: US)
  Receive Date: 20181213
  Receipt Date: 20181213
  Transmission Date: 20190205
  Serious: No
  Sender: FDA-Public Use
  Company Number: US-ASTELLAS-2018US022178

PATIENT
  Sex: Female

DRUGS (1)
  1. TARCEVA [Suspect]
     Active Substance: ERLOTINIB HYDROCHLORIDE
     Indication: LUNG NEOPLASM MALIGNANT
     Dosage: ONGOING
     Route: 048
     Dates: start: 20160831

REACTIONS (6)
  - Diarrhoea [Not Recovered/Not Resolved]
  - Acne [Unknown]
  - Skin fissures [Not Recovered/Not Resolved]
  - Skin disorder [Not Recovered/Not Resolved]
  - Onychoclasis [Unknown]
  - Dry skin [Unknown]
